FAERS Safety Report 14649473 (Version 2)
Quarter: 2020Q2

REPORT INFORMATION
  Report Type: Spontaneous
  Country: DE (occurrence: DE)
  Receive Date: 20180316
  Receipt Date: 20200406
  Transmission Date: 20200713
  Serious: Yes (Life-Threatening, Disabling)
  Sender: FDA-Public Use
  Company Number: DE-TEVA-2018-DE-869259

PATIENT
  Age: 23 Year
  Sex: Male
  Weight: 94 kg

DRUGS (1)
  1. FILGRASTIM [Suspect]
     Active Substance: FILGRASTIM
     Dosage: 2 DOSAGE FORMS DAILY;
     Route: 065

REACTIONS (2)
  - Metastases to lymph nodes [Not Recovered/Not Resolved]
  - Testis cancer [Not Recovered/Not Resolved]
